FAERS Safety Report 7627475-9 (Version None)
Quarter: 2011Q3

REPORT INFORMATION
  Report Type: 
  Country: None (occurrence: None)
  Receive Date: 20110721
  Receipt Date: 20110712
  Transmission Date: 20111222
  Serious: No
  Sender: FDA-Public Use
  Company Number: DE-ELI_LILLY_AND_COMPANY-DE201107003615

PATIENT
  Sex: Male

DRUGS (2)
  1. CIALIS [Suspect]
     Dosage: 20 MG, SINGLE
     Route: 048
     Dates: start: 20110305, end: 20110305
  2. CIALIS [Suspect]
     Dosage: 20 MG, SINGLE
     Route: 048
     Dates: start: 20110303, end: 20110303

REACTIONS (2)
  - BRONCHITIS [None]
  - DIPLOPIA [None]
